FAERS Safety Report 8248169-5 (Version None)
Quarter: 2012Q1

REPORT INFORMATION
  Report Type: 
  Country: None (occurrence: None)
  Receive Date: 20120330
  Receipt Date: 20120316
  Transmission Date: 20120608
  Serious: No
  Sender: FDA-Public Use
  Company Number: US-B.I. PHARMACEUTICALS,INC./RIDGEFIELD-2012-BP-05068BP

PATIENT
  Sex: Female

DRUGS (17)
  1. SPIRIVA [Suspect]
     Indication: CHRONIC OBSTRUCTIVE PULMONARY DISEASE
     Dosage: 18 MCG
     Route: 055
     Dates: start: 20120201, end: 20120301
  2. PROAIR HFA [Concomitant]
     Indication: CHRONIC OBSTRUCTIVE PULMONARY DISEASE
  3. BUSPIRONE HCL [Concomitant]
     Indication: POST-TRAUMATIC STRESS DISORDER
     Dosage: 20 MG
     Route: 048
  4. TRAZODONE HCL [Concomitant]
     Indication: INSOMNIA
     Dosage: 75 MG
     Route: 048
  5. SPIRIVA [Suspect]
     Dosage: 18 MCG
     Route: 055
     Dates: start: 20040101
  6. SIMVASTATIN [Concomitant]
     Indication: BLOOD CHOLESTEROL INCREASED
     Dosage: 10 MG
     Route: 048
  7. GLYBURIDE [Concomitant]
     Indication: DIABETES MELLITUS
     Dosage: 5 MG
     Route: 048
  8. PROAIR HFA [Concomitant]
     Indication: ASTHMA
     Route: 055
     Dates: start: 20120301
  9. FENOFIBRATE [Concomitant]
     Indication: BLOOD CHOLESTEROL INCREASED
     Dosage: 160 MG
     Route: 048
  10. OMEPRAZOLE [Concomitant]
     Indication: GASTROOESOPHAGEAL REFLUX DISEASE
     Dosage: 80 MG
     Route: 048
  11. LEVOTHYROXINE SODIUM [Concomitant]
     Indication: HYPOTHYROIDISM
     Dosage: 137 MCG
     Route: 048
  12. FUROSEMIDE [Concomitant]
     Indication: FLUID RETENTION
     Dosage: 80 MG
     Route: 048
  13. LORATADINE [Concomitant]
     Indication: SEASONAL ALLERGY
     Dosage: 10 MG
     Route: 048
  14. METFORMIN HCL [Concomitant]
     Indication: DIABETES MELLITUS
     Dosage: 1700 MG
     Route: 048
  15. XOPENEX [Concomitant]
     Indication: ASTHMA
     Route: 055
  16. VITAMIN D [Concomitant]
     Indication: PROPHYLAXIS
     Route: 048
  17. XOPENEX [Concomitant]
     Indication: CHRONIC OBSTRUCTIVE PULMONARY DISEASE

REACTIONS (1)
  - BRONCHITIS [None]
